FAERS Safety Report 8019106-3 (Version None)
Quarter: 2012Q1

REPORT INFORMATION
  Report Type: 
  Country: None (occurrence: None)
  Receive Date: 20120103
  Receipt Date: 20111223
  Transmission Date: 20120608
  Serious: Yes (Other)
  Sender: FDA-Public Use
  Company Number: US-BAYER-2011-123702

PATIENT
  Age: 70 Year
  Sex: Male
  Weight: 88.435 kg

DRUGS (2)
  1. CARDIOVASCULAR SYSTEM DRUGS [Concomitant]
  2. ALEVE (CAPLET) [Suspect]
     Indication: ANALGESIC THERAPY
     Dosage: 24 S
     Route: 048

REACTIONS (1)
  - OROPHARYNGEAL BLISTERING [None]
